FAERS Safety Report 8376379-5 (Version None)
Quarter: 2012Q2

REPORT INFORMATION
  Report Type: 
  Country: None (occurrence: None)
  Receive Date: 20120522
  Receipt Date: 20120419
  Transmission Date: 20120825
  Serious: Yes (Other)
  Sender: FDA-Public Use
  Company Number: ZA-UCBSA-057138

PATIENT
  Age: 56 Year
  Sex: Male

DRUGS (3)
  1. DIOTROXIN [Concomitant]
  2. KEPPRA [Suspect]
  3. MICARDIS [Concomitant]

REACTIONS (2)
  - MACULOPATHY [None]
  - PRODUCT DEPOSIT [None]
